FAERS Safety Report 16857693 (Version 2)
Quarter: 2019Q4

REPORT INFORMATION
  Report Type: Spontaneous
  Country: US (occurrence: US)
  Receive Date: 20190926
  Receipt Date: 20191016
  Transmission Date: 20200122
  Serious: Yes (Death, Other)
  Sender: FDA-Public Use
  Company Number: US-VYERA PHARMACEUTICALS, LLC-2019VYE00041

PATIENT
  Age: 51 Year
  Sex: Male
  Weight: 47.17 kg

DRUGS (1)
  1. DARAPRIM [Suspect]
     Active Substance: PYRIMETHAMINE
     Indication: TOXOPLASMOSIS
     Dosage: 50 MG, 1X/DAY
     Route: 048
     Dates: start: 20190821, end: 2019

REACTIONS (5)
  - Hypophagia [Unknown]
  - Weight decreased [Unknown]
  - Acquired immunodeficiency syndrome [Unknown]
  - Death [Fatal]
  - Computerised tomogram abnormal [Unknown]

NARRATIVE: CASE EVENT DATE: 2019
